FAERS Safety Report 21014222 (Version 1)
Quarter: 2022Q2

REPORT INFORMATION
  Report Type: Spontaneous
  Country: CA (occurrence: CA)
  Receive Date: 20220627
  Receipt Date: 20220627
  Transmission Date: 20220720
  Serious: Yes (Hospitalization, Other)
  Sender: FDA-Public Use
  Company Number: CA-ANIPHARMA-2022-CA-001230

PATIENT
  Age: 46 Year
  Sex: Male

DRUGS (2)
  1. CYCLOPHOSPHAMIDE [Suspect]
     Active Substance: CYCLOPHOSPHAMIDE
     Indication: Aplasia pure red cell
     Dosage: 50 MG DAILY
     Dates: start: 201903
  2. PREDNISONE [Concomitant]
     Active Substance: PREDNISONE
     Dosage: 10 MG DAILY

REACTIONS (1)
  - Autoimmune enteropathy [Recovered/Resolved]

NARRATIVE: CASE EVENT DATE: 20190701
